FAERS Safety Report 8928882 (Version 2)
Quarter: 2012Q4

REPORT INFORMATION
  Report Type: 
  Country: US (occurrence: US)
  Receive Date: 20121128
  Receipt Date: 20121210
  Transmission Date: 20130627
  Serious: No
  Sender: FDA-Public Use
  Company Number: US-PFIZER INC-2012296543

PATIENT
  Age: 55 Year
  Sex: Female

DRUGS (2)
  1. PRISTIQ [Suspect]
     Indication: DEPRESSION
     Dosage: 50 mg, UNK
     Dates: start: 2012, end: 201210
  2. PRISTIQ [Suspect]
     Indication: FEELING BAD

REACTIONS (4)
  - Overweight [Unknown]
  - Anxiety [Unknown]
  - Irritability [Unknown]
  - Personality change [Unknown]
